FAERS Safety Report 9720657 (Version 1)
Quarter: 2013Q4

REPORT INFORMATION
  Report Type: Report from Study
  Country: BR (occurrence: BR)
  Receive Date: 20131129
  Receipt Date: 20131129
  Transmission Date: 20140711
  Serious: Yes (Other)
  Sender: FDA-Public Use
  Company Number: PHHY2013BR137982

PATIENT
  Age: 65 Year
  Sex: Female
  Weight: 75 kg

DRUGS (3)
  1. FORASEQ [Suspect]
     Indication: ASTHMA
     Dosage: 12/400 MCG, EVERY 12 HOURS (TREATMENT 1 AND 2) WHEN THE PATIENT EXPERIENCED EPISODE
  2. FORASEQ [Suspect]
     Dosage: 12/200 MCG
  3. FORASEQ [Suspect]
     Dosage: 12/400 MCG

REACTIONS (13)
  - Diabetes mellitus [Unknown]
  - Blood pressure abnormal [Recovered/Resolved]
  - Uterine inflammation [Unknown]
  - Pneumonia [Recovered/Resolved]
  - Emotional disorder [Recovered/Resolved]
  - Chest pain [Recovered/Resolved]
  - Decreased appetite [Not Recovered/Not Resolved]
  - Weight decreased [Recovered/Resolved]
  - Fatigue [Not Recovered/Not Resolved]
  - Depressed mood [Not Recovered/Not Resolved]
  - Headache [Recovered/Resolved]
  - Asthma [Recovering/Resolving]
  - Drug dispensing error [Unknown]
